FAERS Safety Report 4476402-4 (Version None)
Quarter: 2004Q4

REPORT INFORMATION
  Report Type: 
  Country: None (occurrence: None)
  Receive Date: 20041016
  Receipt Date: 20041007
  Transmission Date: 20050328
  Serious: Yes (Hospitalization)
  Sender: FDA-Public Use
  Company Number: US-MERCK-0410USA01213

PATIENT
  Age: 67 Year
  Sex: Female

DRUGS (7)
  1. LIPITOR [Concomitant]
     Route: 065
  2. PLAVIX [Concomitant]
     Route: 065
  3. HYDROCHLOROTHIAZIDE AND LISINOPRIL [Concomitant]
     Route: 065
  4. SYNTHROID [Concomitant]
     Route: 065
  5. LISINOPRIL [Concomitant]
     Route: 065
  6. VIOXX [Suspect]
     Indication: ARTHRITIS
     Route: 048
     Dates: start: 20000101
  7. VIOXX [Suspect]
     Route: 048
     Dates: start: 20040501, end: 20040501

REACTIONS (3)
  - ADVERSE EVENT [None]
  - CEREBROVASCULAR ACCIDENT [None]
  - UNEVALUABLE EVENT [None]
